FAERS Safety Report 5960044-5 (Version None)
Quarter: 2008Q4

REPORT INFORMATION
  Report Type: 
  Country: None (occurrence: None)
  Receive Date: 20081119
  Receipt Date: 20081119
  Transmission Date: 20090506
  Serious: Yes (Hospitalization)
  Sender: FDA-Public Use
  Company Number: None

PATIENT
  Age: 59 Year
  Sex: Male
  Weight: 116 kg

DRUGS (11)
  1. WARFARIN SODIUM [Suspect]
     Indication: THROMBOSIS PROPHYLAXIS
     Dosage: 17.5 MG PO QD X 3 WEEKS
     Route: 048
  2. ASPIRIN [Concomitant]
  3. FUROSEMIDE [Concomitant]
  4. LISINOPRIL [Concomitant]
  5. SIMVASTATIN [Concomitant]
  6. ZETIA [Concomitant]
  7. ADVAIR HFA [Concomitant]
  8. PLAVIX [Concomitant]
  9. AMLODIPINE [Concomitant]
  10. METOPROLOL TARTRATE [Concomitant]
  11. ALBUTEROL [Concomitant]

REACTIONS (4)
  - CONFUSIONAL STATE [None]
  - HAEMATOMA [None]
  - HAEMORRHAGE [None]
  - INTERNATIONAL NORMALISED RATIO INCREASED [None]
